FAERS Safety Report 5116980-5 (Version None)
Quarter: 2006Q3

REPORT INFORMATION
  Report Type: 
  Country: None (occurrence: None)
  Receive Date: 20060922
  Receipt Date: 20060912
  Transmission Date: 20061208
  Serious: Yes (Hospitalization)
  Sender: FDA-Public Use
  Company Number: FRWYE901912SEP06

PATIENT
  Age: 13 Year
  Sex: Male

DRUGS (2)
  1. ADVIL [Suspect]
     Indication: PAROTITIS
     Dosage: 3 TO 4 TABLETS
     Route: 048
     Dates: start: 20060903
  2. EFFERALGAN CODEINE (PARACETAMOL/CODEINE PHOSPHATE) [Concomitant]

REACTIONS (6)
  - ABSCESS [None]
  - BACTERIAL INFECTION [None]
  - CONDITION AGGRAVATED [None]
  - PAROTITIS [None]
  - SALIVARY GLAND CALCULUS [None]
  - SUPERINFECTION [None]
